FAERS Safety Report 5410988-8 (Version None)
Quarter: 2007Q3

REPORT INFORMATION
  Report Type: 
  Country: None (occurrence: None)
  Receive Date: 20070810
  Receipt Date: 20070716
  Transmission Date: 20080115
  Serious: No
  Sender: FDA-Public Use
  Company Number: A0662190A

PATIENT
  Age: 58 Year
  Sex: Male

DRUGS (3)
  1. ALTABAX [Suspect]
     Indication: OPEN WOUND
     Dosage: 1APP UNKNOWN
     Route: 061
     Dates: start: 20070706, end: 20070706
  2. LABETALOL HCL [Suspect]
     Dates: start: 20070501
  3. PREDNISONE TAB [Suspect]

REACTIONS (2)
  - BURNING SENSATION [None]
  - PAIN [None]
